FAERS Safety Report 5525086-2 (Version None)
Quarter: 2007Q4

REPORT INFORMATION
  Report Type: 
  Country: None (occurrence: None)
  Receive Date: 20071126
  Receipt Date: 20071116
  Transmission Date: 20080405
  Serious: Yes (Disabling)
  Sender: FDA-Public Use
  Company Number: GB-WYE-G00522507

PATIENT
  Sex: Female

DRUGS (2)
  1. VENLAFAXIINE HCL [Suspect]
     Dosage: 75 MG UNKNOWN FREQUENCY
     Route: 048
     Dates: start: 20070101, end: 20070813
  2. VENLAFAXIINE HCL [Suspect]
     Dosage: 37.5 MG UNKNOWN FREQUENCY
     Route: 048
     Dates: start: 20070814, end: 20070828

REACTIONS (1)
  - ANORGASMIA [None]
